FAERS Safety Report 8367801-9 (Version None)
Quarter: 2012Q2

REPORT INFORMATION
  Report Type: 
  Country: None (occurrence: None)
  Receive Date: 20120517
  Receipt Date: 20120511
  Transmission Date: 20120825
  Serious: Yes (Hospitalization)
  Sender: FDA-Public Use
  Company Number: GB-ROCHE-670311

PATIENT
  Sex: Female

DRUGS (10)
  1. METHOTREXATE [Concomitant]
  2. PREDNISOLONE [Concomitant]
  3. ACETAMINOPHEN WITH PROPOXYPHENE HCL TAB [Concomitant]
  4. TEMAZEPAM [Concomitant]
     Dosage: REPORTED AS TAMAZEPAM.
  5. MABTHERA [Suspect]
     Indication: RHEUMATOID ARTHRITIS
     Route: 065
  6. ADCAL-D3 [Concomitant]
  7. LACTULOSE [Concomitant]
  8. FOLIC ACID [Concomitant]
  9. OMEPRAZOLE [Concomitant]
  10. SPIRIVA [Concomitant]

REACTIONS (2)
  - PNEUMONIA [None]
  - DEHYDRATION [None]
